FAERS Safety Report 5445890-9 (Version None)
Quarter: 2007Q3

REPORT INFORMATION
  Report Type: 
  Country: None (occurrence: None)
  Receive Date: 20070731
  Receipt Date: 20061208
  Transmission Date: 20080115
  Serious: No
  Sender: FDA-Public Use
  Company Number: 06P-163-0352907-00

PATIENT
  Age: 8 Year
  Sex: Female
  Weight: 22 kg

DRUGS (1)
  1. ULTANE [Suspect]
     Indication: SEDATION
     Dosage: 8 %, AEROSOL, INHALATION
     Route: 055
     Dates: start: 20061208, end: 20061208

REACTIONS (1)
  - CONVULSION [None]
